FAERS Safety Report 10526192 (Version 1)
Quarter: 2014Q4

REPORT INFORMATION
  Report Type: Spontaneous
  Country: US (occurrence: US)
  Receive Date: 20141017
  Receipt Date: 20141017
  Transmission Date: 20150528
  Serious: No
  Sender: FDA-Public Use
  Company Number: US-BAUSCH-2012VX005719

PATIENT
  Sex: Female

DRUGS (1)
  1. MIGRANAL [Suspect]
     Active Substance: DIHYDROERGOTAMINE MESYLATE
     Indication: MIGRAINE
     Route: 045

REACTIONS (2)
  - Product quality issue [Unknown]
  - Laceration [Unknown]

NARRATIVE: CASE EVENT DATE: 20121220
